FAERS Safety Report 22025840 (Version 1)
Quarter: 2023Q1

REPORT INFORMATION
  Report Type: Other
  Country: DE (occurrence: DE)
  Receive Date: 20230223
  Receipt Date: 20230223
  Transmission Date: 20230418
  Serious: Yes (Other)
  Sender: FDA-Public Use
  Company Number: DE-MACLEODS PHARMACEUTICALS US LTD-MAC2023039843

PATIENT

DRUGS (1)
  1. TAMSULOSIN [Suspect]
     Active Substance: TAMSULOSIN
     Indication: Product used for unknown indication
     Dosage: UNK, PROLONGED-RELEASE CAPSULE, HARD (START DATE: UNKNOWN DATE IN DEC 2022, END DATE: 27 JAN 2023)
     Route: 065

REACTIONS (9)
  - Angina pectoris [Not Recovered/Not Resolved]
  - Blood pressure increased [Recovered/Resolved]
  - Sick leave [Unknown]
  - Impaired driving ability [Unknown]
  - Anxiety [Unknown]
  - Malaise [Unknown]
  - Asthenia [Unknown]
  - Dizziness [Recovered/Resolved]
  - Vision blurred [Not Recovered/Not Resolved]

NARRATIVE: CASE EVENT DATE: 20230124
